FAERS Safety Report 4863131-8 (Version None)
Quarter: 2005Q4

REPORT INFORMATION
  Report Type: 
  Country: None (occurrence: None)
  Receive Date: 20051201
  Receipt Date: 20051019
  Transmission Date: 20060501
  Serious: No
  Sender: FDA-Public Use
  Company Number: 32831

PATIENT

DRUGS (1)
  1. NEVANAC [Suspect]
     Indication: PROPHYLAXIS

REACTIONS (1)
  - CORNEAL EPITHELIUM DISORDER [None]
